FAERS Safety Report 20647796 (Version 1)
Quarter: 2022Q1

REPORT INFORMATION
  Report Type: Report from Study
  Country: CN (occurrence: CN)
  Receive Date: 20220329
  Receipt Date: 20220329
  Transmission Date: 20220424
  Serious: Yes (Other)
  Sender: FDA-Public Use
  Company Number: CN-JNJFOC-20220351084

PATIENT

DRUGS (3)
  1. TOPAMAX [Suspect]
     Active Substance: TOPIRAMATE
     Indication: Epilepsy
     Dosage: NATIONAL MEDICINE PERMISSION NUMBER H20020555?INITIAL DOSE WAS 1-3 MG/(KG D)
     Route: 048
  2. TOPAMAX [Suspect]
     Active Substance: TOPIRAMATE
     Dosage: THE INITIAL DOSE OF TOPIRAMATE WAS 2.0 MG/(KG D)
     Route: 048
  3. CARBAMAZEPINE [Suspect]
     Active Substance: CARBAMAZEPINE
     Indication: Epilepsy
     Dosage: NATIONAL MEDICINE PERMISSION NUMBER H35000876
     Route: 065

REACTIONS (8)
  - Unresponsive to stimuli [Unknown]
  - Fatigue [Unknown]
  - Somnolence [Unknown]
  - Drug ineffective [Unknown]
  - Blood alkaline phosphatase increased [Unknown]
  - Blood calcium increased [Unknown]
  - Off label use [Unknown]
  - Product use issue [Unknown]
